FAERS Safety Report 18290040 (Version 1)
Quarter: 2020Q3

REPORT INFORMATION
  Report Type: Spontaneous
  Country: JP (occurrence: JP)
  Receive Date: 20200921
  Receipt Date: 20200921
  Transmission Date: 20201103
  Serious: Yes (Other)
  Sender: FDA-Public Use
  Company Number: NVSJ2020JP009196

PATIENT
  Age: 64 Year
  Sex: Male

DRUGS (3)
  1. COLCHICINE. [Concomitant]
     Active Substance: COLCHICINE
     Indication: BEHCET^S SYNDROME
     Dosage: UNK
     Route: 065
  2. CYCLOSPORINE. [Suspect]
     Active Substance: CYCLOSPORINE
     Dosage: UNK
     Route: 065
  3. CYCLOSPORINE. [Suspect]
     Active Substance: CYCLOSPORINE
     Indication: BEHCET^S SYNDROME
     Dosage: UNK
     Route: 065

REACTIONS (12)
  - Protein urine present [Unknown]
  - Purpura [Unknown]
  - Folliculitis [Unknown]
  - C-reactive protein increased [Unknown]
  - Renal impairment [Recovering/Resolving]
  - Weight decreased [Unknown]
  - Glomerular filtration rate decreased [Unknown]
  - Decreased appetite [Unknown]
  - Episcleritis [Unknown]
  - Glomerulonephritis rapidly progressive [Recovering/Resolving]
  - Tubulointerstitial nephritis [Recovering/Resolving]
  - Urinary occult blood positive [Unknown]
